FAERS Safety Report 20101951 (Version 5)
Quarter: 2024Q2

REPORT INFORMATION
  Report Type: Spontaneous
  Country: CA (occurrence: None)
  Receive Date: 20211123
  Receipt Date: 20240514
  Transmission Date: 20240716
  Serious: Yes (Other)
  Sender: FDA-Public Use
  Company Number: 2021A808936

PATIENT
  Age: 52 Year
  Sex: Male
  Weight: 140 kg

DRUGS (42)
  1. ROSUVASTATIN CALCIUM [Suspect]
     Active Substance: ROSUVASTATIN CALCIUM
     Indication: Product used for unknown indication
     Dosage: 1 EVERY 1 DAYS5.0MG UNKNOWN
     Route: 048
  2. ROSUVASTATIN CALCIUM [Suspect]
     Active Substance: ROSUVASTATIN CALCIUM
     Indication: Product used for unknown indication
     Dosage: 1 EVERY 1 DAYS5.0MG UNKNOWN
     Route: 048
  3. AMLODIPINE BESYLATE\CANDESARTAN CILEXETIL [Suspect]
     Active Substance: AMLODIPINE BESYLATE\CANDESARTAN CILEXETIL
     Indication: Secondary progressive multiple sclerosis
     Dosage: 1 EVERY 1 DAYS
     Route: 048
  4. BACLOFEN [Suspect]
     Active Substance: BACLOFEN
     Indication: Product used for unknown indication
     Dosage: 1 EVERY .3 DAYS
     Route: 048
  5. BACLOFEN [Suspect]
     Active Substance: BACLOFEN
     Indication: Product used for unknown indication
     Dosage: 1 EVERY .3 DAYS
     Route: 048
  6. BACLOFEN [Suspect]
     Active Substance: BACLOFEN
     Indication: Product used for unknown indication
     Dosage: 1 EVERY .3 DAYS
     Route: 048
  7. BISOPROLOL [Suspect]
     Active Substance: BISOPROLOL\BISOPROLOL FUMARATE
     Indication: Secondary progressive multiple sclerosis
     Route: 048
  8. DOXEPIN HYDROCHLORIDE [Suspect]
     Active Substance: DOXEPIN HYDROCHLORIDE
     Indication: Product used for unknown indication
     Dosage: 0.6MG UNKNOWN
  9. GABAPENTIN [Suspect]
     Active Substance: GABAPENTIN
     Indication: Product used for unknown indication
     Dosage: 1 EVERY 1 DAYS
  10. GABAPENTIN [Suspect]
     Active Substance: GABAPENTIN
     Indication: Product used for unknown indication
  11. REBIF [Suspect]
     Active Substance: INTERFERON BETA-1A
     Indication: Product used for unknown indication
     Route: 058
  12. REBIF [Suspect]
     Active Substance: INTERFERON BETA-1A
     Indication: Product used for unknown indication
     Route: 058
  13. TAMSULOSIN [Suspect]
     Active Substance: TAMSULOSIN
     Indication: Secondary progressive multiple sclerosis
     Route: 048
  14. TECFIDERA [Suspect]
     Active Substance: DIMETHYL FUMARATE
     Indication: Product used for unknown indication
  15. LORAZEPAM [Suspect]
     Active Substance: LORAZEPAM
     Indication: Product used for unknown indication
     Route: 048
  16. PRAMIPEXOLE [Suspect]
     Active Substance: PRAMIPEXOLE\PRAMIPEXOLE DIHYDROCHLORIDE
     Indication: Secondary progressive multiple sclerosis
     Dosage: 0.25MG UNKNOWN
     Route: 048
  17. PRAMIPEXOLE [Suspect]
     Active Substance: PRAMIPEXOLE\PRAMIPEXOLE DIHYDROCHLORIDE
     Indication: Secondary progressive multiple sclerosis
     Dosage: 0.25MG UNKNOWN
     Route: 048
  18. RABEPRAZOLE [Suspect]
     Active Substance: RABEPRAZOLE
     Indication: Secondary progressive multiple sclerosis
     Dosage: 20.0MG UNKNOWN
     Route: 048
  19. RABEPRAZOLE [Suspect]
     Active Substance: RABEPRAZOLE
     Indication: Secondary progressive multiple sclerosis
     Dosage: 20.0MG UNKNOWN
     Route: 048
  20. CANDESARTAN CILEXETIL [Concomitant]
     Active Substance: CANDESARTAN CILEXETIL
  21. ALLOPURINOL\BENZBROMARONE [Concomitant]
     Active Substance: ALLOPURINOL\BENZBROMARONE
     Indication: Product used for unknown indication
     Route: 048
  22. DALFAMPRIDINE [Concomitant]
     Active Substance: DALFAMPRIDINE
     Indication: Product used for unknown indication
     Dosage: 10.0MG UNKNOWN
  23. DALFAMPRIDINE [Concomitant]
     Active Substance: DALFAMPRIDINE
     Indication: Product used for unknown indication
     Dosage: 10.0MG UNKNOWN
  24. AMINOBENZOIC ACID [Concomitant]
     Active Substance: AMINOBENZOIC ACID
     Indication: Product used for unknown indication
  25. BIOTIN [Concomitant]
     Active Substance: BIOTIN
     Indication: Product used for unknown indication
  26. CALCIUM PHOSPHATE (DIBASIC) [Concomitant]
     Indication: Product used for unknown indication
     Route: 065
  27. CHOLINE BITARTRATE [Concomitant]
     Active Substance: CHOLINE BITARTRATE
     Indication: Product used for unknown indication
  28. FOLIC ACID [Concomitant]
     Active Substance: FOLIC ACID
     Indication: Product used for unknown indication
     Route: 065
  29. INOSITOL [Concomitant]
     Active Substance: INOSITOL
     Indication: Product used for unknown indication
     Route: 065
  30. NICOTINAMIDE [Concomitant]
     Active Substance: NIACINAMIDE
     Indication: Product used for unknown indication
     Route: 065
  31. PYRIDOXINE HYDROCHLORIDE [Concomitant]
     Active Substance: PYRIDOXINE HYDROCHLORIDE
     Indication: Product used for unknown indication
  32. RIBOFLAVIN [Concomitant]
     Active Substance: RIBOFLAVIN
     Indication: Product used for unknown indication
  33. THIAMINE HYDROCHLORIDE [Concomitant]
     Active Substance: THIAMINE HYDROCHLORIDE
     Indication: Product used for unknown indication
  34. VITAMIN B12 [Concomitant]
     Active Substance: CYANOCOBALAMIN
     Indication: Product used for unknown indication
     Route: 065
  35. VITAMIN C [Concomitant]
     Active Substance: ASCORBIC ACID
     Indication: Product used for unknown indication
     Route: 065
  36. ASPIRIN [Concomitant]
     Active Substance: ASPIRIN
     Indication: Product used for unknown indication
  37. ATIVAN [Concomitant]
     Active Substance: LORAZEPAM
     Indication: Product used for unknown indication
     Dosage: 1 EVERY 1 DAYS
  38. CALCIUM [Concomitant]
     Active Substance: CALCIUM
     Indication: Product used for unknown indication
     Route: 065
  39. ACETYLSALICYLIC ACID/CODEINE [Concomitant]
     Indication: Product used for unknown indication
     Route: 065
  40. RABEPRAZOLE SODIUM [Concomitant]
     Active Substance: RABEPRAZOLE SODIUM
     Indication: Product used for unknown indication
  41. VITAMIN D3 [Concomitant]
     Active Substance: CHOLECALCIFEROL
     Indication: Product used for unknown indication
  42. CALCIUM PANTOTHENATE [Concomitant]
     Active Substance: CALCIUM PANTOTHENATE

REACTIONS (25)
  - Anxiety [Recovered/Resolved]
  - Ataxia [Recovered/Resolved]
  - Balance disorder [Recovered/Resolved]
  - Bradycardia [Recovered/Resolved]
  - Central nervous system lesion [Recovered/Resolved]
  - Dysarthria [Recovered/Resolved]
  - Erectile dysfunction [Recovered/Resolved]
  - Fall [Recovered/Resolved]
  - Gait spastic [Recovered/Resolved]
  - Hypertonic bladder [Recovered/Resolved]
  - Micturition urgency [Recovered/Resolved]
  - Monoparesis [Recovered/Resolved]
  - Movement disorder [Recovered/Resolved]
  - Multiple sclerosis relapse [Recovered/Resolved]
  - Muscle spasticity [Recovered/Resolved]
  - Needle fatigue [Recovered/Resolved]
  - Nocturia [Recovered/Resolved]
  - Pain [Recovered/Resolved]
  - Pollakiuria [Recovered/Resolved]
  - Relapsing-remitting multiple sclerosis [Recovered/Resolved]
  - Dizziness [Recovered/Resolved]
  - Hypoaesthesia [Recovered/Resolved]
  - Insomnia [Recovered/Resolved]
  - Memory impairment [Recovered/Resolved]
  - Off label use [Recovered/Resolved]
